FAERS Safety Report 15397346 (Version 1)
Quarter: 2018Q3

REPORT INFORMATION
  Report Type: Spontaneous
  Country: US (occurrence: US)
  Receive Date: 20180911
  Receipt Date: 20180911
  Transmission Date: 20181010
  Serious: No
  Sender: FDA-Public Use
  Company Number: None

PATIENT
  Age: 25 Year
  Sex: Female

DRUGS (1)
  1. EPCLUSA [Suspect]
     Active Substance: SOFOSBUVIR\VELPATASVIR
     Indication: HEPATITIS C
     Dosage: 400/100 QD PO
     Route: 048
     Dates: start: 20180821

REACTIONS (4)
  - Bowel movement irregularity [None]
  - Hot flush [None]
  - Nausea [None]
  - Rash [None]

NARRATIVE: CASE EVENT DATE: 20180821
